FAERS Safety Report 5820004-1 (Version None)
Quarter: 2008Q3

REPORT INFORMATION
  Report Type: 
  Country: None (occurrence: None)
  Receive Date: 20080718
  Receipt Date: 20080718
  Transmission Date: 20090109
  Serious: Yes (Disabling)
  Sender: FDA-Public Use
  Company Number: None

PATIENT
  Age: 48 Year
  Sex: Male
  Weight: 74.8435 kg

DRUGS (2)
  1. FENTANYL TRANSDERMAL SYSTEM [Suspect]
     Indication: BACK PAIN
     Dosage: 1 48 HOURS TRANSDERMAL
     Route: 062
     Dates: start: 20080715, end: 20080717
  2. FENTANYL TRANSDERMAL SYSTEM [Suspect]
     Indication: JOINT INJURY
     Dosage: 1 48 HOURS TRANSDERMAL
     Route: 062
     Dates: start: 20080715, end: 20080717

REACTIONS (4)
  - BLISTER [None]
  - BURNING SENSATION [None]
  - HAEMORRHAGE [None]
  - RASH [None]
